FAERS Safety Report 4692846-X (Version None)
Quarter: 2005Q2

REPORT INFORMATION
  Report Type: 
  Country: None (occurrence: None)
  Receive Date: 20050617
  Receipt Date: 20050518
  Transmission Date: 20051028
  Serious: Yes (Other)
  Sender: FDA-Public Use
  Company Number: US-BRISTOL-MYERS SQUIBB COMPANY-12976981

PATIENT
  Age: 72 Year
  Sex: Male

DRUGS (3)
  1. ERBITUX [Suspect]
     Indication: COLON CANCER METASTATIC
     Dosage: LOADING DOSE. INTERRUPTED, RESTARTED AT RATE REDUCED BY 50 PERCENT.
     Route: 042
     Dates: start: 20050517, end: 20050517
  2. BENADRYL [Concomitant]
     Indication: PREMEDICATION
     Dates: start: 20050517, end: 20050517
  3. DECADRON [Concomitant]
     Indication: PREMEDICATION
     Dates: start: 20050517, end: 20050517

REACTIONS (3)
  - COUGH [None]
  - DYSPNOEA [None]
  - OXYGEN SATURATION DECREASED [None]
